FAERS Safety Report 21972173 (Version 1)
Quarter: 2023Q1

REPORT INFORMATION
  Report Type: Spontaneous
  Country: US (occurrence: US)
  Receive Date: 20230209
  Receipt Date: 20230209
  Transmission Date: 20230417
  Serious: Yes (Other)
  Sender: FDA-Public Use
  Company Number: US-002147023-NVSC2023US024555

PATIENT
  Age: 11 Year
  Sex: Male

DRUGS (6)
  1. METHYLPREDNISOLONE [Suspect]
     Active Substance: METHYLPREDNISOLONE
     Indication: Pleural effusion
     Dosage: 1000 MG (INTERMITTENT, PULSES)
     Route: 042
  2. METHYLPREDNISOLONE [Suspect]
     Active Substance: METHYLPREDNISOLONE
     Dosage: UNK, QW (PULSES, APPROX. 3 MONTHS TOTAL)
     Route: 042
  3. PREDNISONE [Suspect]
     Active Substance: PREDNISONE
     Indication: Pleural effusion
     Dosage: 40-60 MG, QD
     Route: 048
  4. PREDNISONE [Suspect]
     Active Substance: PREDNISONE
     Dosage: 50 MG
     Route: 065
  5. SUCCIMER [Concomitant]
     Active Substance: SUCCIMER
     Indication: Chelation therapy
     Dosage: UNK
     Route: 030
  6. ACETYLCYSTEINE [Concomitant]
     Active Substance: ACETYLCYSTEINE
     Indication: Chelation therapy
     Dosage: UNK
     Route: 030

REACTIONS (5)
  - Cushing^s syndrome [Recovering/Resolving]
  - Weight increased [Recovering/Resolving]
  - Skin striae [Recovering/Resolving]
  - Hypertension [Recovering/Resolving]
  - Product use in unapproved indication [Unknown]
